FAERS Safety Report 4368178-6 (Version None)
Quarter: 2004Q2

REPORT INFORMATION
  Report Type: 
  Country: None (occurrence: None)
  Receive Date: 20040602
  Receipt Date: 20040512
  Transmission Date: 20050107
  Serious: Yes (Hospitalization, Other)
  Sender: FDA-Public Use
  Company Number: JP-BRISTOL-MYERS SQUIBB COMPANY-12590147

PATIENT
  Age: 80 Year
  Sex: Male

DRUGS (8)
  1. GATIFLO TABS 100 MG [Suspect]
     Indication: BRONCHITIS ACUTE
     Route: 048
     Dates: start: 20040507, end: 20040510
  2. THEOLONG [Concomitant]
     Route: 048
     Dates: start: 20031201
  3. LYSOZYME HCL [Concomitant]
     Route: 048
     Dates: start: 20031201
  4. NORPACE [Concomitant]
     Route: 048
     Dates: start: 20031201
  5. ZANTAC [Concomitant]
     Route: 048
     Dates: start: 20031201
  6. SEREVENT [Concomitant]
     Route: 055
  7. INDOMETHACIN [Concomitant]
     Route: 062
  8. ROCEPHIN [Concomitant]
     Route: 041
     Dates: start: 20040507, end: 20040507

REACTIONS (2)
  - HYPOGLYCAEMIA [None]
  - LIVER DISORDER [None]
